FAERS Safety Report 13747910 (Version 2)
Quarter: 2017Q3

REPORT INFORMATION
  Report Type: Report from Study
  Country: GB (occurrence: GB)
  Receive Date: 20170713
  Receipt Date: 20170719
  Transmission Date: 20171127
  Serious: Yes (Hospitalization, Other)
  Sender: FDA-Public Use
  Company Number: GB-ROCHE-1961479

PATIENT

DRUGS (5)
  1. RITUXIMAB. [Suspect]
     Active Substance: RITUXIMAB
     Indication: SYSTEMIC LUPUS ERYTHEMATOSUS
     Dosage: ON DAYS 1 AND 14
     Route: 042
  2. OCRELIZUMAB. [Suspect]
     Active Substance: OCRELIZUMAB
     Indication: SYSTEMIC LUPUS ERYTHEMATOSUS
     Dosage: 2 X 1000 MG
     Route: 065
  3. OFATUMUMAB [Suspect]
     Active Substance: OFATUMUMAB
     Indication: SYSTEMIC LUPUS ERYTHEMATOSUS
     Dosage: 2 X 700 MG
     Route: 065
  4. METHYLPREDNISOLONE. [Suspect]
     Active Substance: METHYLPREDNISOLONE
     Indication: SYSTEMIC LUPUS ERYTHEMATOSUS
     Route: 042
  5. CYCLOPHOSPHAMIDE. [Suspect]
     Active Substance: CYCLOPHOSPHAMIDE
     Indication: SYSTEMIC LUPUS ERYTHEMATOSUS
     Route: 065

REACTIONS (32)
  - Mycobacterium avium complex infection [Unknown]
  - Systemic lupus erythematosus [Unknown]
  - Acute kidney injury [Unknown]
  - Seizure [Unknown]
  - Renal cell carcinoma [Unknown]
  - Device related infection [Unknown]
  - Infusion related reaction [Unknown]
  - Subcutaneous abscess [Unknown]
  - Serum sickness [Unknown]
  - Large intestine perforation [Unknown]
  - Osteonecrosis [Unknown]
  - Nephrolithiasis [Unknown]
  - Uterine cancer [Unknown]
  - Abdominal abscess [Unknown]
  - Diarrhoea infectious [Unknown]
  - Palpitations [Unknown]
  - Systemic candida [Unknown]
  - Cellulitis [Unknown]
  - Urinary tract infection [Unknown]
  - Pneumocystis jirovecii pneumonia [Unknown]
  - Herpes zoster disseminated [Unknown]
  - Viral infection [Unknown]
  - Embolism [Unknown]
  - Diverticulitis [Unknown]
  - Cerebral haemorrhage [Unknown]
  - Cytomegalovirus infection [Unknown]
  - Necrotising fasciitis [Unknown]
  - Pneumonia [Unknown]
  - Acute coronary syndrome [Unknown]
  - Thymoma [Unknown]
  - HIV infection [Unknown]
  - Atrial fibrillation [Unknown]
